FAERS Safety Report 6383644-X (Version None)
Quarter: 2009Q3

REPORT INFORMATION
  Report Type: 
  Country: None (occurrence: None)
  Receive Date: 20090929
  Receipt Date: 20090929
  Transmission Date: 20100115
  Serious: Yes (Other)
  Sender: FDA-Public Use
  Company Number: None

PATIENT
  Age: 68 Year
  Sex: Male
  Weight: 116.1208 kg

DRUGS (1)
  1. LISINOPRIL [Suspect]
     Indication: HYPERTENSION
     Dosage: 20 MG TWICE A DAY PO
     Route: 048
     Dates: start: 20090830, end: 20090922

REACTIONS (2)
  - ALOPECIA [None]
  - INCREASED TENDENCY TO BRUISE [None]
